FAERS Safety Report 4981971-1 (Version None)
Quarter: 2006Q2

REPORT INFORMATION
  Report Type: 
  Country: None (occurrence: None)
  Receive Date: 20060425
  Receipt Date: 20050302
  Transmission Date: 20061013
  Serious: Yes (Hospitalization, Other)
  Sender: FDA-Public Use
  Company Number: US-MERCK-0503USA00650

PATIENT
  Age: 40 Year
  Sex: Male
  Weight: 66 kg

DRUGS (5)
  1. VIOXX [Suspect]
     Indication: PAIN
     Route: 048
     Dates: start: 20010101, end: 20030101
  2. TRIAZOLAM [Concomitant]
     Route: 065
  3. GUAIFENESIN [Concomitant]
     Route: 065
  4. LEVAQUIN [Concomitant]
     Route: 065
  5. DEPAKOTE [Concomitant]
     Route: 065

REACTIONS (5)
  - ANXIETY [None]
  - CEREBROVASCULAR ACCIDENT [None]
  - MYOCARDIAL INFARCTION [None]
  - PRESCRIBED OVERDOSE [None]
  - THROMBOSIS [None]
